FAERS Safety Report 10108940 (Version 2)
Quarter: 2014Q2

REPORT INFORMATION
  Report Type: Report from Study
  Country: RO (occurrence: RO)
  Receive Date: 20140425
  Receipt Date: 20140606
  Transmission Date: 20141212
  Serious: Yes (Hospitalization)
  Sender: FDA-Public Use
  Company Number: RO-JNJFOC-20140410339

PATIENT
  Age: 73 Year
  Sex: Male
  Weight: 75 kg

DRUGS (9)
  1. ABIRATERONE ACETATE [Suspect]
     Route: 048
  2. ABIRATERONE ACETATE [Suspect]
     Indication: PROSTATE CANCER
     Route: 048
     Dates: start: 20140304, end: 20140317
  3. PREDNISONE [Suspect]
     Indication: PROSTATE CANCER
     Route: 048
  4. FRAXIPARINE [Concomitant]
     Dosage: DOSE 3800 (UNITS UNSPECIFIED)
     Route: 058
     Dates: start: 20140325, end: 20140403
  5. FUROSEMIDE [Concomitant]
     Dosage: DOSE 3800 (UNITS UNSPECIFIED)
     Route: 042
     Dates: start: 20140325, end: 20140403
  6. METOPROLOL [Concomitant]
     Dosage: DOSE 3800 (UNITS UNSPECIFIED)
     Route: 048
     Dates: start: 20140325, end: 20140403
  7. MIOFILIN [Concomitant]
     Dosage: DOSE 3800 (UNITS UNSPECIFIED)
     Route: 042
     Dates: start: 20140325, end: 20140403
  8. ACENOCOUMAROL [Concomitant]
     Dosage: DOSE 3800 (UNITS UNSPECIFIED)
     Route: 048
     Dates: start: 20140325, end: 20140403
  9. SPIRONOLACTONE [Concomitant]
     Dosage: DOSE 3800 (UNITS UNSPECIFIED)
     Route: 048
     Dates: start: 20140325, end: 20140403

REACTIONS (2)
  - Pulmonary microemboli [Recovered/Resolved]
  - Cardiac failure congestive [Recovered/Resolved]
